FAERS Safety Report 19810991 (Version 1)
Quarter: 2021Q3

REPORT INFORMATION
  Report Type: Report from Study
  Country: US (occurrence: US)
  Receive Date: 20210910
  Receipt Date: 20210910
  Transmission Date: 20211014
  Serious: No
  Sender: FDA-Public Use
  Company Number: US-ACADIA PHARMACEUTICALS INC.-ACA-2021-PIM-003038

PATIENT
  Sex: Male

DRUGS (10)
  1. VIAGRA [Concomitant]
     Active Substance: SILDENAFIL CITRATE
  2. GOCOVRI [Concomitant]
     Active Substance: AMANTADINE
  3. PRAMIPEXOLE. [Concomitant]
     Active Substance: PRAMIPEXOLE
  4. FINASTERIDE. [Concomitant]
     Active Substance: FINASTERIDE
  5. NUPLAZID [Suspect]
     Active Substance: PIMAVANSERIN TARTRATE
     Indication: PARKINSON^S DISEASE
     Dosage: 34 MILLIGRAM, QD
     Route: 048
     Dates: start: 20200722
  6. MYRBETRIQ [Concomitant]
     Active Substance: MIRABEGRON
  7. CARBIDOPA/LEVODOPA [Concomitant]
     Active Substance: CARBIDOPA\LEVODOPA
  8. SILDENAFIL. [Concomitant]
     Active Substance: SILDENAFIL
     Dosage: UNK, QD
  9. SOLIFENACIN [Concomitant]
     Active Substance: SOLIFENACIN
  10. CAFFEINE. [Concomitant]
     Active Substance: CAFFEINE

REACTIONS (1)
  - Drug ineffective [Unknown]
